FAERS Safety Report 19139499 (Version 1)
Quarter: 2021Q2

REPORT INFORMATION
  Report Type: Report from Study
  Country: ES (occurrence: ES)
  Receive Date: 20210415
  Receipt Date: 20210415
  Transmission Date: 20210717
  Serious: Yes (Other)
  Sender: FDA-Public Use
  Company Number: ES-MYLANLABS-2021M1022525

PATIENT
  Age: 68 Year
  Sex: Male

DRUGS (4)
  1. SERTRALINE [Suspect]
     Active Substance: SERTRALINE HYDROCHLORIDE
     Indication: DEPRESSIVE SYMPTOM
  2. SERTRALINE [Suspect]
     Active Substance: SERTRALINE HYDROCHLORIDE
     Indication: PARKINSON^S DISEASE
     Dosage: 50 MILLIGRAM, QD
     Route: 065
  3. SAFINAMIDE [Suspect]
     Active Substance: SAFINAMIDE
     Indication: DEPRESSIVE SYMPTOM
  4. SAFINAMIDE [Suspect]
     Active Substance: SAFINAMIDE
     Indication: PARKINSON^S DISEASE
     Dosage: 50 MILLIGRAM, QD
     Route: 065

REACTIONS (5)
  - Diarrhoea [Recovering/Resolving]
  - Serum serotonin increased [Recovering/Resolving]
  - Confusional state [Recovering/Resolving]
  - Sleep disorder [Recovering/Resolving]
  - Toxicity to various agents [Recovering/Resolving]
